FAERS Safety Report 8028313-5 (Version None)
Quarter: 2012Q1

REPORT INFORMATION
  Report Type: 
  Country: None (occurrence: None)
  Receive Date: 20120106
  Receipt Date: 20120104
  Transmission Date: 20120608
  Serious: No
  Sender: FDA-Public Use
  Company Number: US-BAYER-2012-001639

PATIENT
  Age: 43 Year
  Sex: Male

DRUGS (2)
  1. METFORMIN HCL [Concomitant]
  2. ULTRAVIST 150 [Suspect]
     Indication: COMPUTERISED TOMOGRAM ABDOMEN
     Dosage: 100 ML, UNK
     Route: 042
     Dates: start: 20110104

REACTIONS (1)
  - URTICARIA [None]
